FAERS Safety Report 8931277 (Version 2)
Quarter: 2013Q3

REPORT INFORMATION
  Report Type: Report from Study
  Country: JP (occurrence: JP)
  Receive Date: 20121128
  Receipt Date: 20130723
  Transmission Date: 20140515
  Serious: Yes (Other)
  Sender: FDA-Public Use
  Company Number: JP-VERTEX PHARMACEUTICAL INC.-2012-025066

PATIENT
  Age: 61 Year
  Sex: Female

DRUGS (18)
  1. VX-950 (TELAPREVIR) [Suspect]
     Indication: CHRONIC HEPATITIS C
     Dosage: 1500 MG, QD
     Route: 048
     Dates: start: 20120604, end: 20120815
  2. VX-950 (TELAPREVIR) [Suspect]
     Dosage: 750 MG, QD
     Route: 048
     Dates: start: 20120827, end: 20120903
  3. REBETOL [Suspect]
     Indication: CHRONIC HEPATITIS C
     Dosage: 400 MG, QD
     Route: 048
     Dates: start: 20120604, end: 20120701
  4. REBETOL [Suspect]
     Dosage: 200 MG, QD
     Route: 048
     Dates: start: 20120702, end: 20120815
  5. REBETOL [Suspect]
     Dosage: 200 MG, QD
     Route: 048
     Dates: start: 20120827, end: 20121014
  6. REBETOL [Suspect]
     Dosage: 400 MG, QD
     Route: 048
     Dates: start: 20121015
  7. PEGINTRON [Suspect]
     Indication: CHRONIC HEPATITIS C
     Dosage: 1.35 ?G/KG, QW
     Route: 058
     Dates: start: 20120604, end: 20120813
  8. PEGINTRON [Suspect]
     Dosage: 1.35 ?G/KG, QW
     Route: 058
     Dates: start: 20120827, end: 20121015
  9. PEGINTRON [Suspect]
     Dosage: 1.02 ?G/KG, QW
     Route: 058
     Dates: start: 20121022, end: 20121029
  10. PEGINTRON [Suspect]
     Dosage: 1.19 ?G/KG, QW
     Route: 058
     Dates: start: 20121106, end: 20121112
  11. PEGINTRON [Suspect]
     Dosage: 1.35 ?G/KG, QW
     Route: 058
     Dates: start: 20121119
  12. URSO [Concomitant]
     Dosage: 600 MG, QD
     Route: 048
  13. GLYCYRON [Concomitant]
     Dosage: 6 DF, QD
     Route: 048
  14. NEO-MINOPHAGEN C [Concomitant]
     Dosage: 40 ML, QD
     Route: 042
  15. MICOMBI COMBINATION [Concomitant]
     Dosage: 1 DF, QD
     Route: 048
  16. ATELEC [Concomitant]
     Dosage: 20 MG, QD
     Route: 048
  17. THYRADIN [Concomitant]
     Dosage: 50 ?G, QD
     Route: 048
  18. MIYA BM [Concomitant]
     Dosage: 3 G, QD
     Route: 048
     Dates: start: 20120605, end: 20120716

REACTIONS (2)
  - Neutrophil count decreased [Recovered/Resolved]
  - Retinopathy [Recovered/Resolved]
